FAERS Safety Report 7201463-9 (Version None)
Quarter: 2010Q4

REPORT INFORMATION
  Report Type: 
  Country: None (occurrence: None)
  Receive Date: 20101229
  Receipt Date: 20101220
  Transmission Date: 20110411
  Serious: Yes (Hospitalization, Other)
  Sender: FDA-Public Use
  Company Number: GB-MPIJNJ-2010-05647

PATIENT

DRUGS (21)
  1. VELCADE [Suspect]
     Indication: MULTIPLE MYELOMA
     Dosage: 2.47 MG, CYCLIC
     Route: 042
     Dates: start: 20100810, end: 20101019
  2. VELCADE [Suspect]
     Dosage: 2.47 UNK, CYCLIC
     Route: 042
     Dates: start: 20101112
  3. AMLODIPINE [Concomitant]
     Indication: HYPERTENSION
     Dosage: UNK
  4. SIMVASTATIN [Concomitant]
     Indication: HYPERCHOLESTEROLAEMIA
     Dosage: UNK
  5. LANSOPRAZOLE [Concomitant]
     Indication: GASTROOESOPHAGEAL REFLUX DISEASE
     Dosage: UNK
     Dates: start: 20070101
  6. GAVISCON                           /00237601/ [Concomitant]
     Indication: GASTROOESOPHAGEAL REFLUX DISEASE
     Dosage: UNK
     Dates: start: 20100817
  7. LOPERAMIDE [Concomitant]
     Indication: DIARRHOEA
     Dosage: UNK
     Dates: start: 20100907
  8. AUGMENTIN '125' [Concomitant]
     Indication: RHINITIS
     Dosage: UNK
     Dates: start: 20100914
  9. TRAMADOL [Concomitant]
     Indication: PAIN
     Dosage: UNK
     Dates: start: 20100914
  10. PARACETAMOL [Concomitant]
     Indication: PAIN
     Dosage: UNK
     Dates: start: 20100914
  11. CLARITHROMYCIN [Concomitant]
     Indication: RHINITIS
     Dosage: UNK
     Dates: start: 20101007
  12. CODEINE [Concomitant]
     Indication: DIARRHOEA
     Dosage: UNK
     Dates: start: 20101007
  13. CLODRONATE DISODIUM [Concomitant]
     Dosage: UNK
  14. SENNA                              /00142201/ [Concomitant]
     Dosage: UNK
     Dates: start: 20100914
  15. SANDO K                            /00031402/ [Concomitant]
     Dosage: UNK
     Dates: start: 20101012
  16. POSACONAZOLE [Concomitant]
     Dosage: UNK
     Dates: start: 20101101
  17. SERETIDE                           /01420901/ [Concomitant]
     Dosage: UNK
     Dates: start: 20101103
  18. ONDANSETRON [Concomitant]
     Dosage: UNK
     Dates: start: 20101102
  19. RANITIDINE [Concomitant]
     Dosage: UNK
     Dates: start: 20100810
  20. COTRIM [Concomitant]
     Dosage: UNK
     Dates: start: 20101103
  21. CYCLIZINE [Concomitant]
     Dosage: UNK
     Dates: start: 20101001

REACTIONS (8)
  - BRONCHIECTASIS [None]
  - DEHYDRATION [None]
  - DIARRHOEA [None]
  - DYSPNOEA [None]
  - HYPOXIA [None]
  - RENAL IMPAIRMENT [None]
  - VOMITING [None]
  - WEIGHT DECREASED [None]
